FAERS Safety Report 9387774 (Version 2)
Quarter: 2013Q3

REPORT INFORMATION
  Report Type: Spontaneous
  Country: GB (occurrence: None)
  Receive Date: 20130703
  Receipt Date: 20130712
  Transmission Date: 20140515
  Serious: Yes (Disabling, Other)
  Sender: FDA-Public Use
  Company Number: GER/UKI/13/0030337

PATIENT
  Age: 63 Year
  Sex: Male
  Weight: 59 kg

DRUGS (2)
  1. OMEPRAZOLE (OMEPRAZOLE) [Suspect]
     Indication: PRODUCT USED FOR UNKNOWN INDICATION
     Dates: start: 20130227
  2. VFEND (VORICONAZOLE) INFUSION [Suspect]
     Indication: CEREBRAL ASPERGILLOSIS
     Dosage: 6 MG/KG, INTRAVENOUS (NOT OTHERWISE SPECIFIED)
     Route: 042
     Dates: start: 20130227

REACTIONS (2)
  - Toxicity to various agents [None]
  - Drug level increased [None]
